FAERS Safety Report 7482645-8 (Version None)
Quarter: 2011Q2

REPORT INFORMATION
  Report Type: 
  Country: None (occurrence: None)
  Receive Date: 20110516
  Receipt Date: 20110223
  Transmission Date: 20111010
  Serious: Yes (Hospitalization)
  Sender: FDA-Public Use
  Company Number: SE-UCBSA-028018

PATIENT
  Sex: Female

DRUGS (4)
  1. AZILECT [Concomitant]
     Dosage: 1MG
  2. NEUPRO [Suspect]
     Indication: PARKINSONISM
     Dosage: 4MG/24HRS
     Route: 062
     Dates: start: 20101020
  3. MADOPARK QUICK MITE [Concomitant]
     Dosage: 50MG/12.5MG
  4. MADOPARK [Concomitant]
     Dosage: 100MG/25MG

REACTIONS (1)
  - VENOUS THROMBOSIS LIMB [None]
